FAERS Safety Report 10386454 (Version 1)
Quarter: 2014Q3

REPORT INFORMATION
  Report Type: Spontaneous
  Country: ES (occurrence: ES)
  Receive Date: 20140815
  Receipt Date: 20140815
  Transmission Date: 20150326
  Serious: Yes (Death, Hospitalization)
  Sender: FDA-Public Use
  Company Number: ES-PFIZER INC-2014227371

PATIENT
  Age: 77 Year
  Sex: Female

DRUGS (5)
  1. OMEPRAZOLE. [Concomitant]
     Active Substance: OMEPRAZOLE
     Indication: PROPHYLAXIS AGAINST GASTROINTESTINAL ULCER
     Dosage: 20 MG, 1X/DAY
     Route: 048
     Dates: start: 201304
  2. ATENOLOL. [Concomitant]
     Active Substance: ATENOLOL
     Dosage: 100 MG, 1X/DAY
     Route: 048
     Dates: start: 1999
  3. EUTIROX [Concomitant]
     Active Substance: LEVOTHYROXINE SODIUM
     Indication: THYROIDECTOMY
     Dosage: 75 UG, 1X/DAY
     Route: 048
     Dates: start: 1999
  4. SUTENT [Suspect]
     Active Substance: SUNITINIB MALATE
     Indication: PAPILLARY THYROID CANCER
     Dosage: 50 MG, 1X/DAY
     Route: 048
     Dates: start: 20130906, end: 20131006
  5. HYDROCHLOROTHIAZIDE, VALSARTAN [Concomitant]
     Indication: HYPERTENSION
     Dosage: UNK
     Route: 048
     Dates: start: 1999

REACTIONS (4)
  - Multi-organ failure [Fatal]
  - Off label use [Unknown]
  - Shock [Fatal]
  - Posterior reversible encephalopathy syndrome [Fatal]

NARRATIVE: CASE EVENT DATE: 20131007
